FAERS Safety Report 18762160 (Version 1)
Quarter: 2021Q1

REPORT INFORMATION
  Report Type: Spontaneous
  Country: US (occurrence: US)
  Receive Date: 20210119
  Receipt Date: 20210119
  Transmission Date: 20210419
  Serious: Yes (Hospitalization)
  Sender: FDA-Public Use
  Company Number: None

PATIENT
  Age: 57 Year
  Sex: Female
  Weight: 73.9 kg

DRUGS (1)
  1. ASPIRIN (27223) [Suspect]
     Active Substance: ASPIRIN
     Dates: end: 20210103

REACTIONS (8)
  - Hepatic enzyme increased [None]
  - Dyspnoea [None]
  - Decreased appetite [None]
  - Vomiting [None]
  - Fatigue [None]
  - Nausea [None]
  - Metastases to bone [None]
  - Cough [None]

NARRATIVE: CASE EVENT DATE: 20210104
